FAERS Safety Report 12983696 (Version 3)
Quarter: 2016Q4

REPORT INFORMATION
  Report Type: Report from Study
  Country: IT (occurrence: IT)
  Receive Date: 20161129
  Receipt Date: 20161211
  Transmission Date: 20170207
  Serious: Yes (Hospitalization)
  Sender: FDA-Public Use
  Company Number: IT-TEVA-714889ACC

PATIENT
  Age: 61 Year
  Sex: Female

DRUGS (7)
  1. LOSARTAN POTASSIUM + HYDROCHLOROTHIAZIDE [Suspect]
     Active Substance: HYDROCHLOROTHIAZIDE\LOSARTAN POTASSIUM
     Indication: PRODUCT USED FOR UNKNOWN INDICATION
     Dosage: 28 DF TOTAL
     Route: 048
     Dates: start: 20160918, end: 20160918
  2. DOXAZOSIN [Suspect]
     Active Substance: DOXAZOSIN\DOXAZOSIN MESYLATE
     Indication: PRODUCT USED FOR UNKNOWN INDICATION
     Dosage: 80 MG TOTAL
     Route: 048
     Dates: start: 20160918, end: 20160918
  3. TRITTICO - 50 MG COMPRESSE RIVESTITE CON FILM [Suspect]
     Active Substance: TRAZODONE HYDROCHLORIDE
     Indication: PRODUCT USED FOR UNKNOWN INDICATION
     Dosage: 750 MG TOTAL
     Route: 048
     Dates: start: 20160918, end: 20160918
  4. NEBIVOLOL HYDROCHLORIDE [Suspect]
     Active Substance: NEBIVOLOL HYDROCHLORIDE
     Indication: PRODUCT USED FOR UNKNOWN INDICATION
     Dosage: 70 MG TOTAL
     Route: 048
     Dates: start: 20160918, end: 20160918
  5. DALMADORM - 30 MG CAPSULE - MEDA PHARMA S.P.A. [Suspect]
     Active Substance: FLURAZEPAM\FLURAZEPAM HYDROCHLORIDE
     Indication: PRODUCT USED FOR UNKNOWN INDICATION
     Dosage: 450 MG TOTAL
     Route: 048
     Dates: start: 20160918, end: 20160918
  6. LACIREX - 6 MG COMPRESSE RIVESTITE CON FILM [Suspect]
     Active Substance: LACIDIPINE
     Indication: PRODUCT USED FOR UNKNOWN INDICATION
     Dosage: 42 MG TOTAL
     Dates: start: 20160918, end: 20160918
  7. FLUOXETINE HYDROCHLORIDE. [Suspect]
     Active Substance: FLUOXETINE HYDROCHLORIDE
     Indication: PRODUCT USED FOR UNKNOWN INDICATION
     Dosage: 560 MG TOTAL
     Route: 048
     Dates: start: 20160918, end: 20160918

REACTIONS (3)
  - Drug abuse [Recovered/Resolved]
  - Hypotension [Recovered/Resolved]
  - Suicide attempt [Recovered/Resolved]

NARRATIVE: CASE EVENT DATE: 20160918
